FAERS Safety Report 5215594-6 (Version None)
Quarter: 2007Q1

REPORT INFORMATION
  Report Type: 
  Country: None (occurrence: None)
  Receive Date: 20070123
  Receipt Date: 20070111
  Transmission Date: 20070707
  Serious: Yes (Life-Threatening, Hospitalization, Other)
  Sender: FDA-Public Use
  Company Number: AU-ELI_LILLY_AND_COMPANY-AU200612001190

PATIENT
  Age: 70 Year
  Sex: Male

DRUGS (7)
  1. HUMALOG [Suspect]
     Dosage: 6 U, EACH EVENING
     Route: 058
  2. HUMALOG [Suspect]
     Dosage: 28 U, UNK
  3. LANTUS [Concomitant]
     Dosage: 28 U, DAILY (1/D)
     Route: 058
  4. ASPIRIN [Concomitant]
     Indication: ANTICOAGULANT THERAPY
  5. ATORVASTATIN CALCIUM [Concomitant]
     Indication: HYPERCHOLESTEROLAEMIA
  6. RANITIDINE [Concomitant]
     Indication: GASTROOESOPHAGEAL REFLUX DISEASE
  7. SOTALOL HYDROCHLORIDE [Concomitant]
     Indication: ARRHYTHMIA

REACTIONS (4)
  - HYPOGLYCAEMIA [None]
  - HYPOGLYCAEMIC SEIZURE [None]
  - MEDICATION ERROR [None]
  - PNEUMONIA ASPIRATION [None]
